FAERS Safety Report 10056197 (Version 1)
Quarter: 2014Q2

REPORT INFORMATION
  Report Type: Spontaneous
  Country: NL (occurrence: None)
  Receive Date: 20140401
  Receipt Date: 20140401
  Transmission Date: 20141212
  Serious: Yes (Life-Threatening)
  Sender: FDA-Public Use
  Company Number: B0979862A

PATIENT
  Age: 18 Year
  Sex: Male
  Weight: 75.84 kg

DRUGS (5)
  1. FLUOXETINE [Suspect]
     Indication: DEPRESSION
     Route: 048
     Dates: start: 201402
  2. PAROXETINE HYDROCHLORIDE [Suspect]
     Indication: DEPRESSION
     Route: 048
     Dates: start: 201311
  3. MIRTAZAPINE [Suspect]
     Indication: DEPRESSION
     Route: 048
     Dates: start: 201312
  4. QUETIAPINE [Suspect]
     Indication: SLEEP DISORDER
     Route: 048
     Dates: start: 201312
  5. LORAZEPAM [Suspect]
     Indication: SLEEP DISORDER
     Route: 048
     Dates: start: 201312

REACTIONS (2)
  - Aggression [None]
  - Drug interaction [None]
